FAERS Safety Report 7771190-8 (Version None)
Quarter: 2011Q3

REPORT INFORMATION
  Report Type: 
  Country: None (occurrence: None)
  Receive Date: 20110922
  Receipt Date: 20110607
  Transmission Date: 20111222
  Serious: No
  Sender: FDA-Public Use
  Company Number: US-ASTRAZENECA-2011SE35022

PATIENT
  Age: 47 Year
  Sex: Female

DRUGS (7)
  1. TIZANIDINE HCL [Concomitant]
  2. DOXEPIN [Concomitant]
  3. SEROQUEL [Suspect]
     Indication: INSOMNIA
     Route: 048
     Dates: start: 20090101
  4. CELEXA [Concomitant]
  5. PROPRANOLOL [Concomitant]
  6. ALPRAZOLAM [Concomitant]
  7. KLONOPIN [Concomitant]

REACTIONS (4)
  - OFF LABEL USE [None]
  - INSOMNIA [None]
  - DRUG DOSE OMISSION [None]
  - WEIGHT INCREASED [None]
